FAERS Safety Report 15460840 (Version 1)
Quarter: 2018Q4

REPORT INFORMATION
  Report Type: Report from Study
  Country: US (occurrence: US)
  Receive Date: 20181003
  Receipt Date: 20181003
  Transmission Date: 20190204
  Serious: Yes (Hospitalization)
  Sender: FDA-Public Use
  Company Number: US-ACTELION-A-US2018-177611

PATIENT
  Age: 40 Year
  Sex: Female
  Weight: 74.83 kg

DRUGS (5)
  1. UPTRAVI [Suspect]
     Active Substance: SELEXIPAG
     Indication: PULMONARY ARTERIAL HYPERTENSION
     Route: 048
  2. VELETRI [Suspect]
     Active Substance: EPOPROSTENOL
     Dosage: 7.5 NG/KG, PER MIN
     Route: 042
  3. ADCIRCA [Concomitant]
     Active Substance: TADALAFIL
  4. LETAIRIS [Concomitant]
     Active Substance: AMBRISENTAN
  5. VELETRI [Suspect]
     Active Substance: EPOPROSTENOL
     Indication: PULMONARY ARTERIAL HYPERTENSION
     Dosage: 6 NG/KG, PER MIN
     Route: 042

REACTIONS (10)
  - Somnolence [Unknown]
  - Peripheral swelling [Unknown]
  - Hypersensitivity [Unknown]
  - Dizziness [Unknown]
  - Headache [Unknown]
  - Dyspnoea exertional [Unknown]
  - Nasopharyngitis [Unknown]
  - Diarrhoea [Unknown]
  - Chest pain [Unknown]
  - Abdominal pain upper [Unknown]

NARRATIVE: CASE EVENT DATE: 20180812
